FAERS Safety Report 19007252 (Version 1)
Quarter: 2021Q1

REPORT INFORMATION
  Report Type: Spontaneous
  Country: US (occurrence: US)
  Receive Date: 20210315
  Receipt Date: 20210315
  Transmission Date: 20210420
  Serious: Yes (Life-Threatening, Other)
  Sender: FDA-Public Use
  Company Number: None

PATIENT
  Age: 72 Year
  Sex: Male
  Weight: 81 kg

DRUGS (7)
  1. COENZYME Q10 [Concomitant]
     Active Substance: DIETARY SUPPLEMENT\UBIDECARENONE
  2. DILTIAZEM. [Concomitant]
     Active Substance: DILTIAZEM
  3. TRELEGY ELLIPTA [Suspect]
     Active Substance: FLUTICASONE FUROATE\UMECLIDINIUM BROMIDE\VILANTEROL TRIFENATATE
     Indication: CHRONIC OBSTRUCTIVE PULMONARY DISEASE
     Dosage: ?          OTHER STRENGTH:MCG;QUANTITY:1 PUFF(S);?
     Route: 055
     Dates: start: 20210219, end: 20210312
  4. VITAMIN C [Concomitant]
     Active Substance: ASCORBIC ACID
  5. ASPIRIN 81 MG [Concomitant]
     Active Substance: ASPIRIN
  6. DIGOXIN. [Concomitant]
     Active Substance: DIGOXIN
  7. MULTIVITAMIN [Concomitant]
     Active Substance: VITAMINS

REACTIONS (7)
  - Oropharyngeal pain [None]
  - Middle insomnia [None]
  - Dyspnoea [None]
  - Obstructive airways disorder [None]
  - Aphasia [None]
  - Productive cough [None]
  - Aphonia [None]

NARRATIVE: CASE EVENT DATE: 20210313
